FAERS Safety Report 25524460 (Version 1)
Quarter: 2025Q3

REPORT INFORMATION
  Report Type: Spontaneous
  Country: US (occurrence: None)
  Receive Date: 20250703
  Receipt Date: 20250703
  Transmission Date: 20251020
  Serious: No
  Sender: FDA-CTU
  Company Number: None

PATIENT
  Age: 72 Year
  Sex: Male

DRUGS (1)
  1. PAZOPANIB [Suspect]
     Active Substance: PAZOPANIB
     Indication: Desmoid tumour
     Dosage: 800 MG DAILY ORAL ?
     Route: 048

REACTIONS (4)
  - Abdominal discomfort [None]
  - Abdominal pain upper [None]
  - Nausea [None]
  - Therapy interrupted [None]
